FAERS Safety Report 10753355 (Version 2)
Quarter: 2016Q1

REPORT INFORMATION
  Report Type: Other
  Country: US (occurrence: US)
  Receive Date: 20150130
  Receipt Date: 20160219
  Transmission Date: 20160525
  Serious: No
  Sender: FDA-Public Use
  Company Number: US-ACORDA-ACO_105945_2014

PATIENT
  Sex: Female

DRUGS (2)
  1. AMPYRA [Suspect]
     Active Substance: DALFAMPRIDINE
     Dosage: 10 MG, QAM
     Route: 065
     Dates: start: 201410
  2. AMPYRA [Suspect]
     Active Substance: DALFAMPRIDINE
     Indication: MULTIPLE SCLEROSIS
     Dosage: 10 MG, Q 12 HRS
     Dates: start: 20140827

REACTIONS (5)
  - Inappropriate schedule of drug administration [Unknown]
  - Insomnia [Recovered/Resolved]
  - Dry throat [Recovered/Resolved]
  - Drug dose omission [Unknown]
  - Drug effect decreased [Unknown]
